FAERS Safety Report 25216011 (Version 2)
Quarter: 2025Q2

REPORT INFORMATION
  Report Type: Report from Study
  Country: US (occurrence: US)
  Receive Date: 20250418
  Receipt Date: 20250512
  Transmission Date: 20250716
  Serious: Yes (Other)
  Sender: ROCHE
  Company Number: US-ROCHE-10000255218

PATIENT
  Sex: Male

DRUGS (7)
  1. CELLCEPT [Suspect]
     Active Substance: MYCOPHENOLATE MOFETIL
     Indication: Pemphigoid
     Route: 048
     Dates: start: 202310
  2. CELLCEPT [Suspect]
     Active Substance: MYCOPHENOLATE MOFETIL
     Route: 048
  3. DOXYCYCLINE [Concomitant]
     Active Substance: DOXYCYCLINE
     Route: 048
  4. DUPIXENT [Concomitant]
     Active Substance: DUPILUMAB
     Route: 058
  5. DOXYCYCLINE [Concomitant]
     Active Substance: DOXYCYCLINE
  6. PREDNISONE [Concomitant]
     Active Substance: PREDNISONE
  7. METHOTREXATE [Concomitant]
     Active Substance: METHOTREXATE

REACTIONS (2)
  - Basal cell carcinoma [Recovered/Resolved]
  - Off label use [Unknown]
